FAERS Safety Report 9298404 (Version 1)
Quarter: 2013Q2

REPORT INFORMATION
  Report Type: Spontaneous
  Country: BR (occurrence: BR)
  Receive Date: 20130520
  Receipt Date: 20130520
  Transmission Date: 20140414
  Serious: Yes (Death)
  Sender: FDA-Public Use
  Company Number: BR-B.I. PHARMACEUTICALS,INC./RIDGEFIELD-2013-BR-00545BR

PATIENT
  Sex: Female

DRUGS (6)
  1. BEROTEC [Suspect]
     Indication: ASTHMA
     Route: 055
     Dates: end: 20120604
  2. ATROVENT [Suspect]
     Indication: ASTHMA
     Route: 055
     Dates: end: 20120604
  3. PULMICORT [Suspect]
     Indication: ASTHMA
     Route: 055
     Dates: end: 20120604
  4. OLMETEC HCT [Concomitant]
  5. LOSARTAN [Concomitant]
     Dates: end: 20120604
  6. ATENSINA [Concomitant]
     Dates: end: 20120604

REACTIONS (2)
  - Pulmonary fibrosis [Fatal]
  - Respiratory failure [Fatal]
